FAERS Safety Report 6986725-2 (Version None)
Quarter: 2010Q3

REPORT INFORMATION
  Report Type: 
  Country: None (occurrence: None)
  Receive Date: 20100915
  Receipt Date: 20090727
  Transmission Date: 20110219
  Serious: No
  Sender: FDA-Public Use
  Company Number: US-WYE-H10341709

PATIENT
  Sex: Female
  Weight: 77.18 kg

DRUGS (7)
  1. PRISTIQ [Suspect]
     Indication: DEPRESSION
     Route: 048
     Dates: start: 20090101
  2. CONJUGATED ESTROGENS [Concomitant]
  3. GLUCOSAMINE [Concomitant]
  4. FISH OIL [Concomitant]
  5. MULTI-VITAMINS [Concomitant]
  6. LISINOPRIL [Concomitant]
  7. OMEPRAZOLE [Concomitant]

REACTIONS (1)
  - WEIGHT INCREASED [None]
